FAERS Safety Report 14060954 (Version 2)
Quarter: 2017Q4

REPORT INFORMATION
  Report Type: Spontaneous
  Country: US (occurrence: US)
  Receive Date: 20171007
  Receipt Date: 20171104
  Transmission Date: 20180321
  Serious: No
  Sender: FDA-Public Use
  Company Number: US-TEVA-811107USA

PATIENT
  Age: 51 Year
  Sex: Male
  Weight: 93.07 kg

DRUGS (3)
  1. LOSARTAN. [Concomitant]
     Active Substance: LOSARTAN
  2. ACIDOPHILUS [Concomitant]
     Active Substance: LACTOBACILLUS ACIDOPHILUS
     Indication: PROBIOTIC THERAPY
  3. COPAXONE [Suspect]
     Active Substance: GLATIRAMER ACETATE
     Indication: RADIOLOGICALLY ISOLATED SYNDROME
     Dates: start: 20170920, end: 20171002

REACTIONS (6)
  - Chills [Recovered/Resolved]
  - Pain [Unknown]
  - Cold sweat [Unknown]
  - Hypopnoea [Recovered/Resolved]
  - Pyrexia [Recovered/Resolved]
  - Muscle spasms [Recovered/Resolved]

NARRATIVE: CASE EVENT DATE: 20170920
